FAERS Safety Report 14996394 (Version 1)
Quarter: 2018Q2

REPORT INFORMATION
  Report Type: Report from Study
  Country: US (occurrence: US)
  Receive Date: 20180611
  Receipt Date: 20180611
  Transmission Date: 20180711
  Serious: No
  Sender: FDA-Public Use
  Company Number: PHEH2018US022811

PATIENT
  Sex: Female

DRUGS (1)
  1. COSENTYX [Suspect]
     Active Substance: SECUKINUMAB
     Indication: PRODUCT USED FOR UNKNOWN INDICATION
     Dosage: 150 MG, Q2W
     Route: 058

REACTIONS (6)
  - Pruritus [Unknown]
  - Drug ineffective [Unknown]
  - Skin discolouration [Not Recovered/Not Resolved]
  - Condition aggravated [Unknown]
  - Wound [Not Recovered/Not Resolved]
  - Erythema [Unknown]
